FAERS Safety Report 7378504-1 (Version None)
Quarter: 2011Q1

REPORT INFORMATION
  Report Type: 
  Country: None (occurrence: None)
  Receive Date: 20110328
  Receipt Date: 20110317
  Transmission Date: 20110831
  Serious: Yes (Hospitalization)
  Sender: FDA-Public Use
  Company Number: JP-ASTRAZENECA-2011SE05562

PATIENT
  Age: 81 Year
  Sex: Female
  Weight: 39 kg

DRUGS (6)
  1. GLYBURIDE [Suspect]
     Route: 048
     Dates: start: 19990413, end: 20110125
  2. BLOPRESS [Suspect]
     Indication: HYPERTENSION
     Route: 048
     Dates: start: 20100629, end: 20110125
  3. CONTOL [Concomitant]
     Route: 048
     Dates: start: 19990413
  4. CEROCRAL [Concomitant]
     Route: 048
     Dates: start: 19990413
  5. ACTOS [Suspect]
     Route: 048
     Dates: start: 20060904, end: 20110125
  6. VITAMEDIN CAPSULE [Concomitant]
     Route: 048
     Dates: start: 19990413

REACTIONS (2)
  - BLOOD CREATINE PHOSPHOKINASE INCREASED [None]
  - HYPOGLYCAEMIA [None]
